FAERS Safety Report 25595905 (Version 1)
Quarter: 2025Q3

REPORT INFORMATION
  Report Type: Spontaneous
  Country: US (occurrence: US)
  Receive Date: 20250723
  Receipt Date: 20250723
  Transmission Date: 20251020
  Serious: No
  Sender: IPSEN BIOPHARMACEUTICALS, INC.
  Company Number: US-IPSEN Group, Research and Development-2025-17249

PATIENT
  Sex: Female

DRUGS (1)
  1. IQIRVO [Suspect]
     Active Substance: ELAFIBRANOR
     Indication: Primary biliary cholangitis
     Dosage: TAKE 1 (80 MG) TABLET BY MOUTH ONCE DAILY
     Dates: start: 20250621

REACTIONS (2)
  - Fatigue [Unknown]
  - Product dose omission issue [Unknown]
